FAERS Safety Report 9465217 (Version 2)
Quarter: 2013Q3

REPORT INFORMATION
  Report Type: Spontaneous
  Country: FR (occurrence: FR)
  Receive Date: 20130819
  Receipt Date: 20130819
  Transmission Date: 20140515
  Serious: Yes (Hospitalization, Other)
  Sender: FDA-Public Use
  Company Number: FR-JNJFOC-20090706706

PATIENT
  Age: 33 Year
  Sex: Male

DRUGS (2)
  1. PARACETAMOL [Suspect]
     Route: 048
  2. PARACETAMOL [Suspect]
     Indication: SINUSITIS
     Route: 048

REACTIONS (3)
  - Rash pustular [Recovered/Resolved]
  - Pyrexia [Recovered/Resolved]
  - Dermatitis exfoliative [Recovered/Resolved]
